FAERS Safety Report 8312064-3 (Version None)
Quarter: 2012Q2

REPORT INFORMATION
  Report Type: 
  Country: None (occurrence: None)
  Receive Date: 20120425
  Receipt Date: 20110711
  Transmission Date: 20120825
  Serious: Yes (Other)
  Sender: FDA-Public Use
  Company Number: US-TEVA-2011003378

PATIENT
  Sex: Female
  Weight: 82.628 kg

DRUGS (1)
  1. PROVIGIL [Suspect]
     Indication: DEPRESSION
     Route: 048
     Dates: start: 20060101, end: 20110315

REACTIONS (11)
  - SKIN BURNING SENSATION [None]
  - SENSORY DISTURBANCE [None]
  - NIGHTMARE [None]
  - ASTHENIA [None]
  - DYSPHONIA [None]
  - WEIGHT INCREASED [None]
  - HEADACHE [None]
  - HALLUCINATION [None]
  - FATIGUE [None]
  - POLLAKIURIA [None]
  - CRYING [None]
